FAERS Safety Report 7396809-5 (Version None)
Quarter: 2011Q1

REPORT INFORMATION
  Report Type: 
  Country: None (occurrence: None)
  Receive Date: 20110331
  Receipt Date: 20110331
  Transmission Date: 20110831
  Serious: Yes (Other)
  Sender: FDA-Public Use
  Company Number: None

PATIENT
  Age: 42 Year
  Sex: Female
  Weight: 65.7716 kg

DRUGS (2)
  1. CLARITHROMYCIN [Suspect]
     Indication: BRONCHITIS
     Dosage: 500MG TWICE A DAY PO
     Route: 048
     Dates: start: 20110328, end: 20110329
  2. CLARITHROMYCIN [Suspect]
     Indication: PNEUMONIA
     Dosage: 500MG TWICE A DAY PO
     Route: 048
     Dates: start: 20110328, end: 20110329

REACTIONS (11)
  - HALLUCINATION [None]
  - SINUS DISORDER [None]
  - DIARRHOEA [None]
  - DYSGEUSIA [None]
  - PARAESTHESIA ORAL [None]
  - PALPITATIONS [None]
  - DYSPNOEA [None]
  - HEADACHE [None]
  - INSOMNIA [None]
  - FEELING ABNORMAL [None]
  - BURNING SENSATION [None]
